FAERS Safety Report 10794435 (Version 1)
Quarter: 2015Q1

REPORT INFORMATION
  Report Type: Spontaneous
  Country: US (occurrence: US)
  Receive Date: 20150213
  Receipt Date: 20150213
  Transmission Date: 20150721
  Serious: No
  Sender: FDA-Public Use
  Company Number: US-PFIZER INC-2015051746

PATIENT
  Age: 89 Year
  Sex: Female
  Weight: 55 kg

DRUGS (1)
  1. ADVIL [Suspect]
     Active Substance: IBUPROFEN
     Indication: ARTHRALGIA
     Dosage: 200 MG, SINGLE
     Route: 048
     Dates: start: 201502, end: 201502

REACTIONS (2)
  - Dysphagia [Unknown]
  - Product size issue [Unknown]
